FAERS Safety Report 7535483-1 (Version None)
Quarter: 2011Q2

REPORT INFORMATION
  Report Type: 
  Country: None (occurrence: None)
  Receive Date: 20110609
  Receipt Date: 20110531
  Transmission Date: 20111010
  Serious: Yes (Death)
  Sender: FDA-Public Use
  Company Number: FR-CELGENEUS-056-21880-11053779

PATIENT
  Age: 77 Year
  Sex: Female

DRUGS (15)
  1. NEXIUM [Concomitant]
     Route: 065
  2. DEXAMETHASONE [Concomitant]
     Route: 065
     Dates: start: 20100801
  3. GLYBURIDE [Concomitant]
     Route: 065
  4. ALKERAN [Suspect]
     Indication: MULTIPLE MYELOMA
     Route: 065
  5. CRESTOR [Concomitant]
     Route: 065
  6. ZINC CHLORIDE [Concomitant]
     Route: 065
  7. VELCADE [Suspect]
     Route: 065
     Dates: start: 20110201
  8. HYTACAND [Concomitant]
     Route: 065
  9. HYPERIUM [Concomitant]
     Route: 065
  10. AMLODIPINE [Concomitant]
     Route: 065
  11. PLAVIX [Concomitant]
     Route: 065
  12. REVLIMID [Suspect]
     Indication: MULTIPLE MYELOMA
     Dosage: 10 MILLIGRAM
     Route: 048
     Dates: start: 20100802, end: 20100823
  13. VELCADE [Suspect]
     Indication: MULTIPLE MYELOMA
     Route: 065
     Dates: start: 20080101, end: 20100101
  14. LANTUS [Concomitant]
     Route: 065
  15. FERROUS SULFATE TAB [Concomitant]
     Route: 065

REACTIONS (1)
  - ACUTE MYELOID LEUKAEMIA [None]
